FAERS Safety Report 25324170 (Version 3)
Quarter: 2025Q3

REPORT INFORMATION
  Report Type: Report from Study
  Country: US (occurrence: US)
  Receive Date: 20250516
  Receipt Date: 20250910
  Transmission Date: 20251020
  Serious: No
  Sender: SUNOVION
  Company Number: US-SUMITOMO PHARMA SWITZERLAND GMBH-2025SPA004941

PATIENT
  Age: 76 Year
  Sex: Male

DRUGS (10)
  1. ORGOVYX [Suspect]
     Active Substance: RELUGOLIX
     Indication: Prostate cancer
     Dosage: 360 MG, SINGLE
     Route: 048
     Dates: start: 20250228, end: 20250228
  2. ORGOVYX [Suspect]
     Active Substance: RELUGOLIX
     Dosage: 120 MG, QD
     Route: 048
     Dates: start: 20250301
  3. ABIRATERONE ACETATE [Concomitant]
     Active Substance: ABIRATERONE ACETATE
     Route: 048
  4. COENZYME Q10 [Concomitant]
     Active Substance: DIETARY SUPPLEMENT\UBIDECARENONE
     Route: 048
  5. PREDNISONE [Concomitant]
     Active Substance: PREDNISONE
     Route: 048
  6. SODIUM BICARBONATE [Concomitant]
     Active Substance: SODIUM BICARBONATE
     Route: 048
  7. TADALAFIL [Concomitant]
     Active Substance: TADALAFIL
     Route: 048
  8. FERROUS SULFATE [Concomitant]
     Active Substance: FERROUS SULFATE
     Route: 048
  9. VITAMINS [Concomitant]
     Active Substance: VITAMINS
  10. DIETARY SUPPLEMENT\HERBALS\MILK THISTLE [Concomitant]
     Active Substance: MILK THISTLE

REACTIONS (5)
  - Palpitations [Unknown]
  - Peripheral swelling [Unknown]
  - Gait disturbance [Unknown]
  - Dyspepsia [Unknown]
  - Therapy interrupted [Recovered/Resolved]
